FAERS Safety Report 7203807-0 (Version None)
Quarter: 2010Q4

REPORT INFORMATION
  Report Type: 
  Country: None (occurrence: None)
  Receive Date: 20101217
  Receipt Date: 20101204
  Transmission Date: 20110411
  Serious: Yes (Other)
  Sender: FDA-Public Use
  Company Number: 2010US000074

PATIENT
  Age: 73 Year
  Sex: Male
  Weight: 102.9665 kg

DRUGS (7)
  1. ENTEREG [Suspect]
     Indication: POSTOPERATIVE ILEUS
     Dosage: 12 MG; ; PO
     Route: 048
     Dates: start: 20101129, end: 20101203
  2. BUMEX [Concomitant]
  3. LISINOPRIL [Concomitant]
  4. METAMUCIL-2 [Concomitant]
  5. METOPROLOL [Concomitant]
  6. PEPCID [Concomitant]
  7. POTASSIUM CHLORIDE [Concomitant]

REACTIONS (3)
  - ACUTE MYOCARDIAL INFARCTION [None]
  - ANAEMIA POSTOPERATIVE [None]
  - TACHYCARDIA [None]
